FAERS Safety Report 21898269 (Version 2)
Quarter: 2023Q1

REPORT INFORMATION
  Report Type: Report from Study
  Country: KR (occurrence: KR)
  Receive Date: 20230123
  Receipt Date: 20230210
  Transmission Date: 20230418
  Serious: Yes (Other)
  Sender: FDA-Public Use
  Company Number: KR-MYLANLABS-2023M1005543

PATIENT
  Age: 63 Year
  Sex: Male
  Weight: 62.7 kg

DRUGS (190)
  1. XANAX [Interacting]
     Active Substance: ALPRAZOLAM
     Indication: Product used for unknown indication
     Dosage: 2 DOSAGE FORM
     Route: 048
     Dates: start: 20190821, end: 20190821
  2. XANAX [Interacting]
     Active Substance: ALPRAZOLAM
     Dosage: 2 DOSAGE FORM
     Route: 048
     Dates: start: 20190902, end: 20190902
  3. XANAX [Interacting]
     Active Substance: ALPRAZOLAM
     Dosage: 3 DOSAGE FORM, QD
     Route: 048
     Dates: start: 20190903, end: 20191006
  4. XANAX [Interacting]
     Active Substance: ALPRAZOLAM
     Dosage: 2 DOSAGE FORM
     Route: 048
     Dates: start: 20191007, end: 20191007
  5. XANAX [Interacting]
     Active Substance: ALPRAZOLAM
     Dosage: 2.5 DOSAGE FORM
     Route: 048
     Dates: start: 20191008, end: 20191008
  6. XANAX [Interacting]
     Active Substance: ALPRAZOLAM
     Dosage: 3 DOSAGE FORM
     Route: 048
     Dates: start: 20191009, end: 20191102
  7. BISACODYL [Interacting]
     Active Substance: BISACODYL
     Indication: Product used for unknown indication
     Dosage: 10 MILLIGRAM
     Route: 065
     Dates: start: 20190715, end: 20190715
  8. BISACODYL [Interacting]
     Active Substance: BISACODYL
     Dosage: 10 MILLIGRAM
     Route: 065
     Dates: start: 20190807, end: 20190807
  9. BISACODYL [Interacting]
     Active Substance: BISACODYL
     Dosage: 10 MILLIGRAM
     Route: 065
     Dates: start: 20190809, end: 20190809
  10. DIAZEPAM [Interacting]
     Active Substance: DIAZEPAM
     Indication: Depression
     Dosage: 1 DOSAGE FORM, QD
     Route: 048
  11. MAGNESIUM OXIDE [Interacting]
     Active Substance: MAGNESIUM OXIDE
     Indication: Product used for unknown indication
     Dosage: 500 MILLIGRAM
     Route: 048
     Dates: start: 20181114, end: 20181114
  12. MAGNESIUM OXIDE [Interacting]
     Active Substance: MAGNESIUM OXIDE
     Dosage: 500 MILLIGRAM
     Route: 048
     Dates: start: 20190225, end: 20190324
  13. MAGNESIUM OXIDE [Interacting]
     Active Substance: MAGNESIUM OXIDE
     Dosage: 1000 MILLIGRAM
     Route: 048
     Dates: start: 20190325, end: 20190804
  14. MAGNESIUM OXIDE [Interacting]
     Active Substance: MAGNESIUM OXIDE
     Dosage: 1 DOSAGE FORM
     Route: 048
     Dates: start: 20190807, end: 20190807
  15. MAGNESIUM OXIDE [Interacting]
     Active Substance: MAGNESIUM OXIDE
     Dosage: 2 DOSAGE FORM
     Route: 048
     Dates: start: 20190808, end: 20191116
  16. ACETAMINOPHEN [Interacting]
     Active Substance: ACETAMINOPHEN
     Indication: Product used for unknown indication
     Dosage: 1 DOSAGE FORM
     Route: 048
     Dates: start: 20181217, end: 20190105
  17. ACETAMINOPHEN [Interacting]
     Active Substance: ACETAMINOPHEN
     Dosage: 1 DOSAGE FORM
     Route: 048
     Dates: start: 20191004, end: 20191004
  18. ACETAMINOPHEN [Interacting]
     Active Substance: ACETAMINOPHEN
     Dosage: 1 DOSAGE FORM, QD
     Route: 048
     Dates: start: 20191007, end: 20191010
  19. PSEUDOEPHEDRINE HYDROCHLORIDE\TRIPROLIDINE HYDROCHLORIDE [Interacting]
     Active Substance: PSEUDOEPHEDRINE HYDROCHLORIDE\TRIPROLIDINE HYDROCHLORIDE
     Indication: Product used for unknown indication
     Dosage: 1 DOSAGE FORM
     Route: 048
     Dates: start: 20190830, end: 20190830
  20. SCOPOLAMINE [Interacting]
     Active Substance: SCOPOLAMINE
     Indication: Product used for unknown indication
     Dosage: 1 DOSAGE FORM, QD
     Route: 048
  21. SCOPOLAMINE [Interacting]
     Active Substance: SCOPOLAMINE
     Dosage: 2.5 DOSAGE FORM
     Route: 048
     Dates: start: 20190814, end: 20190814
  22. SCOPOLAMINE [Interacting]
     Active Substance: SCOPOLAMINE
     Dosage: 1 DOSAGE FORM
     Route: 048
     Dates: start: 20190815, end: 20190901
  23. BISACODYL\DOCUSATE SODIUM [Interacting]
     Active Substance: BISACODYL\DOCUSATE SODIUM
     Indication: Product used for unknown indication
     Dosage: 10 MILLIGRAM
     Route: 048
     Dates: start: 20190813, end: 20190813
  24. BISACODYL\DOCUSATE SODIUM [Interacting]
     Active Substance: BISACODYL\DOCUSATE SODIUM
     Dosage: UNK
     Route: 048
     Dates: start: 20190815, end: 20190818
  25. BISACODYL\DOCUSATE SODIUM [Interacting]
     Active Substance: BISACODYL\DOCUSATE SODIUM
     Dosage: 10 MILLIGRAM
     Route: 048
     Dates: start: 20191022, end: 20191022
  26. BISACODYL\DOCUSATE SODIUM [Interacting]
     Active Substance: BISACODYL\DOCUSATE SODIUM
     Dosage: 10 MILLIGRAM
     Route: 048
     Dates: start: 20191030, end: 20191030
  27. BISACODYL\DOCUSATE SODIUM [Interacting]
     Active Substance: BISACODYL\DOCUSATE SODIUM
     Dosage: 10 MILLIGRAM
     Route: 048
     Dates: start: 20191115, end: 20191115
  28. BISACODYL\DOCUSATE SODIUM [Interacting]
     Active Substance: BISACODYL\DOCUSATE SODIUM
     Dosage: 10 MILLIGRAM
     Route: 048
     Dates: start: 20191121, end: 20191210
  29. DIETARY SUPPLEMENT\PROBIOTICS [Interacting]
     Active Substance: DIETARY SUPPLEMENT\PROBIOTICS
     Indication: Product used for unknown indication
     Dosage: 2 GRAM
     Route: 048
     Dates: start: 20190908, end: 20190908
  30. DIETARY SUPPLEMENT\PROBIOTICS [Interacting]
     Active Substance: DIETARY SUPPLEMENT\PROBIOTICS
     Dosage: 2 GRAM
     Route: 048
     Dates: start: 20190909, end: 20190911
  31. MONTMORILLONITE [Interacting]
     Active Substance: MONTMORILLONITE
     Indication: Product used for unknown indication
     Dosage: 20 MILLILITER
     Route: 048
     Dates: start: 20190930, end: 20191009
  32. MONTMORILLONITE [Interacting]
     Active Substance: MONTMORILLONITE
     Dosage: 20 MILLILITER, QD
     Route: 048
     Dates: start: 20191017, end: 20191017
  33. MONTMORILLONITE [Interacting]
     Active Substance: MONTMORILLONITE
     Dosage: 100 MILLILITER
     Route: 048
     Dates: start: 20191018, end: 20191018
  34. MONTMORILLONITE [Interacting]
     Active Substance: MONTMORILLONITE
     Dosage: 20 MILLILITER, QD
     Route: 048
     Dates: start: 20191121, end: 20191217
  35. TRIMEBUTINE MALEATE [Interacting]
     Active Substance: TRIMEBUTINE MALEATE
     Indication: Product used for unknown indication
     Dosage: 1 DOSAGE FORM
     Route: 048
     Dates: start: 20190908, end: 20190908
  36. TRIMEBUTINE MALEATE [Interacting]
     Active Substance: TRIMEBUTINE MALEATE
     Dosage: 1 DOSAGE FORM
     Route: 048
     Dates: start: 20190909, end: 20191007
  37. CIPROFLOXACIN [Suspect]
     Active Substance: CIPROFLOXACIN
     Indication: Product used for unknown indication
     Dosage: 400 MILLIGRAM
     Route: 042
     Dates: start: 20201013, end: 20201015
  38. MOSAPRIDE CITRATE DIHYDRATE [Suspect]
     Active Substance: MOSAPRIDE CITRATE DIHYDRATE
     Indication: Product used for unknown indication
     Dosage: 1 DOSAGE FORM
     Route: 048
     Dates: start: 20190808, end: 20190908
  39. MOSAPRIDE CITRATE DIHYDRATE [Suspect]
     Active Substance: MOSAPRIDE CITRATE DIHYDRATE
     Dosage: 2.5 DOSAGE FORM
     Route: 048
     Dates: start: 20190809, end: 20190809
  40. MOSAPRIDE CITRATE DIHYDRATE [Suspect]
     Active Substance: MOSAPRIDE CITRATE DIHYDRATE
     Dosage: 1 DOSAGE FORM
     Route: 048
     Dates: start: 20190810, end: 20190818
  41. MOSAPRIDE CITRATE DIHYDRATE [Suspect]
     Active Substance: MOSAPRIDE CITRATE DIHYDRATE
     Dosage: 1 DOSAGE FORM
     Route: 048
     Dates: start: 20190822, end: 20190912
  42. ACETYLCYSTEINE [Interacting]
     Active Substance: ACETYLCYSTEINE
     Indication: Product used for unknown indication
     Dosage: 800 MILLIGRAM
     Route: 045
     Dates: start: 20190820, end: 20191014
  43. CEFEPIME HYDROCHLORIDE [Suspect]
     Active Substance: CEFEPIME HYDROCHLORIDE
     Indication: Product used for unknown indication
     Dosage: 2 DOSAGE FORM (START DATE: 10-MAY-2021, STOP DATE:12-MAY-2021)
     Route: 042
  44. LACTULOSE [Interacting]
     Active Substance: LACTULOSE
     Indication: Product used for unknown indication
     Dosage: 15 MILLIGRAM, QD
     Route: 048
     Dates: start: 20190807, end: 20190807
  45. LACTULOSE [Interacting]
     Active Substance: LACTULOSE
     Dosage: 30 MILLIGRAM, QD
     Route: 048
     Dates: start: 20190826, end: 20190908
  46. TALNIFLUMATE [Interacting]
     Active Substance: TALNIFLUMATE
     Indication: Product used for unknown indication
     Dosage: 1 DOSAGE FORM
     Route: 048
     Dates: start: 20181217, end: 20190105
  47. PIPERACILLIN SODIUM\TAZOBACTAM SODIUM [Suspect]
     Active Substance: PIPERACILLIN SODIUM\TAZOBACTAM SODIUM
     Indication: Product used for unknown indication
     Dosage: 4.5 GRAM
     Route: 042
     Dates: start: 20190819, end: 20190819
  48. PIPERACILLIN SODIUM\TAZOBACTAM SODIUM [Suspect]
     Active Substance: PIPERACILLIN SODIUM\TAZOBACTAM SODIUM
     Dosage: 4.5 GRAM
     Route: 042
     Dates: start: 20190820, end: 20190829
  49. PIPERACILLIN SODIUM\TAZOBACTAM SODIUM [Suspect]
     Active Substance: PIPERACILLIN SODIUM\TAZOBACTAM SODIUM
     Dosage: 4.5 GRAM
     Route: 042
     Dates: start: 20190905, end: 20190905
  50. PIPERACILLIN SODIUM\TAZOBACTAM SODIUM [Suspect]
     Active Substance: PIPERACILLIN SODIUM\TAZOBACTAM SODIUM
     Dosage: 4.5 GRAM
     Route: 042
     Dates: start: 20190906, end: 20190912
  51. PIPERACILLIN SODIUM\TAZOBACTAM SODIUM [Suspect]
     Active Substance: PIPERACILLIN SODIUM\TAZOBACTAM SODIUM
     Dosage: 4.5 GRAM
     Route: 042
     Dates: start: 20190924, end: 20190924
  52. PIPERACILLIN SODIUM\TAZOBACTAM SODIUM [Suspect]
     Active Substance: PIPERACILLIN SODIUM\TAZOBACTAM SODIUM
     Dosage: 4.5 GRAM
     Route: 042
     Dates: start: 20190925, end: 20191009
  53. PIPERACILLIN SODIUM\TAZOBACTAM SODIUM [Suspect]
     Active Substance: PIPERACILLIN SODIUM\TAZOBACTAM SODIUM
     Dosage: 4.5 GRAM
     Route: 042
     Dates: start: 20191010, end: 20191013
  54. PIPERACILLIN SODIUM\TAZOBACTAM SODIUM [Suspect]
     Active Substance: PIPERACILLIN SODIUM\TAZOBACTAM SODIUM
     Dosage: 4.5 GRAM
     Route: 042
     Dates: start: 20191028, end: 20191028
  55. PIPERACILLIN SODIUM\TAZOBACTAM SODIUM [Suspect]
     Active Substance: PIPERACILLIN SODIUM\TAZOBACTAM SODIUM
     Dosage: 4.5 GRAM
     Route: 042
     Dates: start: 20191029, end: 20191110
  56. PIPERACILLIN SODIUM\TAZOBACTAM SODIUM [Suspect]
     Active Substance: PIPERACILLIN SODIUM\TAZOBACTAM SODIUM
     Dosage: 4.5 GRAM
     Route: 042
     Dates: start: 20200312, end: 20200331
  57. PIPERACILLIN SODIUM\TAZOBACTAM SODIUM [Suspect]
     Active Substance: PIPERACILLIN SODIUM\TAZOBACTAM SODIUM
     Dosage: 4.5 GRAM
     Route: 042
     Dates: start: 20200416, end: 20200422
  58. PIPERACILLIN SODIUM\TAZOBACTAM SODIUM [Suspect]
     Active Substance: PIPERACILLIN SODIUM\TAZOBACTAM SODIUM
     Dosage: 1 DOSAGE FORM
     Route: 042
     Dates: start: 20201015, end: 20201019
  59. PIPERACILLIN SODIUM\TAZOBACTAM SODIUM [Suspect]
     Active Substance: PIPERACILLIN SODIUM\TAZOBACTAM SODIUM
     Dosage: 1 DOSAGE FORM
     Route: 042
     Dates: start: 20201117, end: 20201118
  60. PREGABALIN [Interacting]
     Active Substance: PREGABALIN
     Indication: Product used for unknown indication
     Dosage: 1 DOSAGE FORM
     Route: 048
     Dates: start: 20191012, end: 20191012
  61. PREGABALIN [Interacting]
     Active Substance: PREGABALIN
     Dosage: 2 DOSAGE FORM
     Route: 048
     Dates: start: 20191013, end: 20191014
  62. PREGABALIN [Interacting]
     Active Substance: PREGABALIN
     Dosage: 1 DOSAGE FORM
     Route: 048
     Dates: start: 20191015, end: 20191015
  63. PREGABALIN [Interacting]
     Active Substance: PREGABALIN
     Dosage: 1 DOSAGE FORM
     Route: 048
     Dates: start: 20191016, end: 20191016
  64. PREGABALIN [Interacting]
     Active Substance: PREGABALIN
     Dosage: 1 DOSAGE FORM
     Route: 048
     Dates: start: 20191017
  65. CIPROFLOXACIN HYDROCHLORIDE [Suspect]
     Active Substance: CIPROFLOXACIN HYDROCHLORIDE
     Indication: Product used for unknown indication
     Dosage: 1 DOSAGE FORM, START DATE: 13-OCT-2021, STOP DATE: 15-OCT-2021
     Route: 048
  66. SACCHAROMYCES CEREVISIAE [Interacting]
     Active Substance: SACCHAROMYCES CEREVISIAE
     Indication: Constipation
     Dosage: 282.5 MILLIGRAM
     Route: 048
     Dates: start: 20191023, end: 20191023
  67. MEROPENEM [Suspect]
     Active Substance: MEROPENEM
     Indication: Product used for unknown indication
     Dosage: 1 DOSAGE FORM, START DATE: 07-MAY-2021 STOP DATE: 10-MAY-2021
     Route: 042
  68. METOCLOPRAMIDE [Interacting]
     Active Substance: METOCLOPRAMIDE
     Indication: Product used for unknown indication
     Dosage: 5 MILLIGRAM
     Route: 042
     Dates: start: 20181114, end: 20181115
  69. MUPIROCIN [Suspect]
     Active Substance: MUPIROCIN
     Indication: Product used for unknown indication
     Dosage: UNK
     Route: 065
     Dates: start: 20200404, end: 202005
  70. METRONIDAZOLE [Suspect]
     Active Substance: METRONIDAZOLE
     Indication: Product used for unknown indication
     Dosage: 2 DOSAGE FORM
     Route: 048
     Dates: start: 20191018, end: 20191018
  71. METRONIDAZOLE [Suspect]
     Active Substance: METRONIDAZOLE
     Dosage: 2 DOSAGE FORM
     Route: 048
     Dates: start: 20191019, end: 20191021
  72. FENTANYL [Suspect]
     Active Substance: FENTANYL
     Indication: Product used for unknown indication
     Dosage: 600 MICROGRAM, QD
     Route: 065
     Dates: start: 20191022
  73. PREDNICARBATE [Suspect]
     Active Substance: PREDNICARBATE
     Indication: Product used for unknown indication
     Dosage: UNK, START DATE: 12-DEC-2020
     Route: 065
     Dates: start: 20201212
  74. FAMOTIDINE [Suspect]
     Active Substance: FAMOTIDINE
     Indication: Product used for unknown indication
     Dosage: 20 MILLIGRAM
     Route: 048
     Dates: start: 20190820, end: 20190823
  75. LOPERAMIDE HYDROCHLORIDE [Suspect]
     Active Substance: LOPERAMIDE HYDROCHLORIDE
     Indication: Product used for unknown indication
     Dosage: 1 DOSAGE FORM, QD
     Route: 048
     Dates: start: 20191023, end: 20191027
  76. TRAMADOL HYDROCHLORIDE [Interacting]
     Active Substance: TRAMADOL HYDROCHLORIDE
     Indication: Product used for unknown indication
     Dosage: 100 MILLIGRAM, QD
     Route: 048
     Dates: start: 20181019, end: 20181019
  77. TRAMADOL HYDROCHLORIDE [Interacting]
     Active Substance: TRAMADOL HYDROCHLORIDE
     Dosage: 50 MILLIGRAM, QD
     Route: 048
     Dates: start: 20181020, end: 20181020
  78. TRAMADOL HYDROCHLORIDE [Interacting]
     Active Substance: TRAMADOL HYDROCHLORIDE
     Dosage: 50 MILLIGRAM, QD
     Route: 048
     Dates: start: 20181113, end: 20181113
  79. TRAMADOL HYDROCHLORIDE [Interacting]
     Active Substance: TRAMADOL HYDROCHLORIDE
     Dosage: 50 MILLIGRAM
     Route: 048
     Dates: start: 20181114
  80. TRAMADOL HYDROCHLORIDE [Interacting]
     Active Substance: TRAMADOL HYDROCHLORIDE
     Dosage: 50 MILLIGRAM
     Route: 048
     Dates: start: 20190717, end: 20190718
  81. TRAMADOL HYDROCHLORIDE [Interacting]
     Active Substance: TRAMADOL HYDROCHLORIDE
     Dosage: 50 MILLIGRAM, QD
     Route: 048
     Dates: start: 20190719, end: 20190721
  82. TRAMADOL HYDROCHLORIDE [Interacting]
     Active Substance: TRAMADOL HYDROCHLORIDE
     Dosage: 50 MILLIGRAM, QD
     Route: 048
     Dates: start: 20190823, end: 20190823
  83. TRAMADOL HYDROCHLORIDE [Interacting]
     Active Substance: TRAMADOL HYDROCHLORIDE
     Dosage: 50 MILLIGRAM, QD
     Route: 048
     Dates: start: 20190906, end: 20190914
  84. TRAMADOL HYDROCHLORIDE [Interacting]
     Active Substance: TRAMADOL HYDROCHLORIDE
     Dosage: 50 MILLIGRAM, QD
     Route: 048
     Dates: start: 20191003, end: 20191005
  85. TRAMADOL HYDROCHLORIDE [Interacting]
     Active Substance: TRAMADOL HYDROCHLORIDE
     Dosage: 50 MILLIGRAM, QD
     Route: 048
     Dates: start: 20191031, end: 20191031
  86. TRAMADOL HYDROCHLORIDE [Interacting]
     Active Substance: TRAMADOL HYDROCHLORIDE
     Dosage: 50 MILLIGRAM
     Route: 048
     Dates: start: 20191101, end: 20191105
  87. TRAMADOL HYDROCHLORIDE [Interacting]
     Active Substance: TRAMADOL HYDROCHLORIDE
     Dosage: 50 MILLIGRAM, QD
     Route: 048
     Dates: start: 20191107, end: 20191107
  88. MONTMORILLONITE [Suspect]
     Active Substance: MONTMORILLONITE
     Indication: Product used for unknown indication
     Dosage: 20 MILLILITER
     Route: 048
     Dates: start: 20191019, end: 20191021
  89. ACETAMINOPHEN [Interacting]
     Active Substance: ACETAMINOPHEN
     Indication: Product used for unknown indication
     Dosage: 1 GRAM, QD
     Route: 042
     Dates: start: 20190819, end: 20190819
  90. FUROSEMIDE [Suspect]
     Active Substance: FUROSEMIDE
     Indication: Product used for unknown indication
     Dosage: 20 MILLIGRAM, QD
     Route: 048
     Dates: start: 20190905, end: 20190905
  91. FUROSEMIDE [Suspect]
     Active Substance: FUROSEMIDE
     Dosage: 10 MILLIGRAM, QD
     Route: 048
     Dates: start: 20190910, end: 20190910
  92. LEVOFLOXACIN [Suspect]
     Active Substance: LEVOFLOXACIN
     Indication: Product used for unknown indication
     Dosage: 250 MILLIGRAM
     Route: 048
     Dates: start: 20190825, end: 20190830
  93. LEVOFLOXACIN [Suspect]
     Active Substance: LEVOFLOXACIN
     Dosage: 250 MILLIGRAM
     Route: 048
     Dates: start: 20200307, end: 20200320
  94. LORAZEPAM [Suspect]
     Active Substance: LORAZEPAM
     Indication: Product used for unknown indication
     Dosage: UNK, START AND STOP DATE: 15-NOV-2020
     Route: 065
  95. SULFAMETHOXAZOLE\TRIMETHOPRIM [Suspect]
     Active Substance: SULFAMETHOXAZOLE\TRIMETHOPRIM
     Indication: Product used for unknown indication
     Dosage: 2 DOSAGE FORM, START DATE: 19-OCT-2020
     Route: 048
     Dates: end: 20201020
  96. PROPACETAMOL HYDROCHLORIDE [Interacting]
     Active Substance: PROPACETAMOL HYDROCHLORIDE
     Indication: Product used for unknown indication
     Dosage: 1 GRAM
     Route: 042
     Dates: start: 20181114, end: 20181114
  97. PROPACETAMOL HYDROCHLORIDE [Interacting]
     Active Substance: PROPACETAMOL HYDROCHLORIDE
     Dosage: 1 GRAM
     Route: 042
     Dates: start: 20190905, end: 20190905
  98. PROPACETAMOL HYDROCHLORIDE [Interacting]
     Active Substance: PROPACETAMOL HYDROCHLORIDE
     Dosage: 1 GRAM
     Route: 042
     Dates: start: 20191027, end: 20191029
  99. KETOROLAC TROMETHAMINE [Suspect]
     Active Substance: KETOROLAC TROMETHAMINE
     Indication: Product used for unknown indication
     Dosage: 30 MILLIGRAM, QD
     Route: 065
     Dates: start: 20190719, end: 20190719
  100. KETOROLAC TROMETHAMINE [Suspect]
     Active Substance: KETOROLAC TROMETHAMINE
     Dosage: 30 MILLIGRAM, QD
     Route: 065
     Dates: start: 20190924, end: 20190924
  101. KETOROLAC TROMETHAMINE [Suspect]
     Active Substance: KETOROLAC TROMETHAMINE
     Dosage: 1 DOSAGE FORM, QD
     Route: 065
     Dates: start: 20201013, end: 20201013
  102. ACETAMINOPHEN\TRAMADOL HYDROCHLORIDE [Interacting]
     Active Substance: ACETAMINOPHEN\TRAMADOL HYDROCHLORIDE
     Indication: Product used for unknown indication
     Dosage: 1 DOSAGE FORM
     Route: 048
     Dates: start: 20191014, end: 20191014
  103. ACETAMINOPHEN\TRAMADOL HYDROCHLORIDE [Interacting]
     Active Substance: ACETAMINOPHEN\TRAMADOL HYDROCHLORIDE
     Dosage: 1 DOSAGE FORM
     Route: 048
     Dates: start: 20191015, end: 20191015
  104. ACETAMINOPHEN\TRAMADOL HYDROCHLORIDE [Interacting]
     Active Substance: ACETAMINOPHEN\TRAMADOL HYDROCHLORIDE
     Dosage: 1 DOSAGE FORM
     Route: 048
     Dates: start: 20181019, end: 20181027
  105. ACETAMINOPHEN\TRAMADOL HYDROCHLORIDE [Interacting]
     Active Substance: ACETAMINOPHEN\TRAMADOL HYDROCHLORIDE
     Dosage: 1 DOSAGE FORM
     Route: 048
     Dates: start: 20191016, end: 20191027
  106. FUROSEMIDE [Concomitant]
     Active Substance: FUROSEMIDE
     Indication: Product used for unknown indication
     Dosage: 30 MILLIGRAM, QD
     Route: 048
     Dates: start: 20190822, end: 20190822
  107. FUROSEMIDE [Concomitant]
     Active Substance: FUROSEMIDE
     Dosage: 20 MILLIGRAM, QD
     Route: 048
     Dates: start: 20190827, end: 20190827
  108. FUROSEMIDE [Concomitant]
     Active Substance: FUROSEMIDE
     Dosage: 10 MILLIGRAM, QD
     Route: 048
     Dates: start: 20190830, end: 20190830
  109. FUROSEMIDE [Concomitant]
     Active Substance: FUROSEMIDE
     Dosage: 20 MILLIGRAM, QD
     Route: 048
     Dates: start: 20190901, end: 20190901
  110. FUROSEMIDE [Concomitant]
     Active Substance: FUROSEMIDE
     Dosage: 3 MILLIGRAM, QD
     Route: 048
     Dates: start: 20190907, end: 20190907
  111. FUROSEMIDE [Concomitant]
     Active Substance: FUROSEMIDE
     Dosage: 10 MILLIGRAM, QD
     Route: 048
     Dates: start: 20190918, end: 20190918
  112. FUROSEMIDE [Concomitant]
     Active Substance: FUROSEMIDE
     Dosage: 10 MILLIGRAM, QD
     Route: 048
     Dates: start: 20190920, end: 20190921
  113. FUROSEMIDE [Concomitant]
     Active Substance: FUROSEMIDE
     Dosage: 10 MILLIGRAM, QD
     Route: 048
     Dates: start: 20190925, end: 20190925
  114. FUROSEMIDE [Concomitant]
     Active Substance: FUROSEMIDE
     Dosage: 20 MILLIGRAM, QD
     Route: 048
     Dates: start: 20190929, end: 20190929
  115. FUROSEMIDE [Concomitant]
     Active Substance: FUROSEMIDE
     Dosage: 20 MILLIGRAM, QD
     Route: 048
     Dates: start: 20191003, end: 20191003
  116. FUROSEMIDE [Concomitant]
     Active Substance: FUROSEMIDE
     Dosage: 10 MILLIGRAM, QD
     Route: 048
     Dates: start: 20191012, end: 20191012
  117. FUROSEMIDE [Concomitant]
     Active Substance: FUROSEMIDE
     Dosage: 20 MILLIGRAM, QD
     Route: 048
     Dates: start: 20191110, end: 20191110
  118. FUROSEMIDE [Concomitant]
     Active Substance: FUROSEMIDE
     Dosage: 20 MILLIGRAM, QD
     Route: 048
     Dates: start: 20191110, end: 20191110
  119. UBIDECARENONE [Concomitant]
     Active Substance: UBIDECARENONE
     Dosage: 5 MILLIGRAM
     Route: 065
     Dates: end: 20180818
  120. UBIDECARENONE [Concomitant]
     Active Substance: UBIDECARENONE
     Dosage: 1 DOSAGE FORM
     Route: 048
     Dates: start: 20190822, end: 20201006
  121. METHYLCOBALAMIN [Concomitant]
     Active Substance: METHYLCOBALAMIN
     Indication: Hypovitaminosis
     Dosage: UNK
     Route: 065
     Dates: end: 20180818
  122. METHYLCOBALAMIN [Concomitant]
     Active Substance: METHYLCOBALAMIN
     Dosage: 1 DOSAGE FORM
     Route: 048
     Dates: start: 20190822, end: 20191006
  123. METHYLCOBALAMIN [Concomitant]
     Active Substance: METHYLCOBALAMIN
     Dosage: 1 DOSAGE FORM
     Route: 048
     Dates: start: 20191007, end: 20191008
  124. METHYLCOBALAMIN [Concomitant]
     Active Substance: METHYLCOBALAMIN
     Dosage: 1 DOSAGE FORM
     Route: 048
     Dates: start: 20191009
  125. QUETIAPINE FUMARATE [Concomitant]
     Active Substance: QUETIAPINE FUMARATE
     Indication: Sleep disorder
     Dosage: 1 DOSAGE FORM, QD
     Route: 048
     Dates: start: 20190901, end: 20190913
  126. QUETIAPINE FUMARATE [Concomitant]
     Active Substance: QUETIAPINE FUMARATE
     Dosage: 1.5 DOSAGE FORM, QD
     Route: 048
     Dates: start: 20190914, end: 20190914
  127. QUETIAPINE FUMARATE [Concomitant]
     Active Substance: QUETIAPINE FUMARATE
     Dosage: 1 DOSAGE FORM
     Route: 048
     Dates: start: 20190915, end: 20190915
  128. QUETIAPINE FUMARATE [Concomitant]
     Active Substance: QUETIAPINE FUMARATE
     Dosage: 2 DOSAGE FORM, QD
     Route: 048
     Dates: start: 20191016, end: 20191016
  129. QUETIAPINE FUMARATE [Concomitant]
     Active Substance: QUETIAPINE FUMARATE
     Dosage: 0.5 DOSAGE FORM, QD
     Route: 048
     Dates: start: 20191017, end: 20191018
  130. QUETIAPINE FUMARATE [Concomitant]
     Active Substance: QUETIAPINE FUMARATE
     Dosage: 1.5 DOSAGE FORM, QD
     Route: 048
     Dates: start: 20191019, end: 20191019
  131. QUETIAPINE FUMARATE [Concomitant]
     Active Substance: QUETIAPINE FUMARATE
     Dosage: 0.75 DOSAGE FORM, QD
     Route: 048
     Dates: start: 20191020, end: 20191020
  132. QUETIAPINE FUMARATE [Concomitant]
     Active Substance: QUETIAPINE FUMARATE
     Dosage: 87.5 MILLIGRAM
     Route: 048
     Dates: start: 20191021, end: 20191022
  133. QUETIAPINE FUMARATE [Concomitant]
     Active Substance: QUETIAPINE FUMARATE
     Dosage: 1 DOSAGE FORM
     Route: 048
     Dates: start: 20191023, end: 20191105
  134. THIAMINE HYDROCHLORIDE [Concomitant]
     Active Substance: THIAMINE HYDROCHLORIDE
     Indication: Hypovitaminosis
     Dosage: 50 MILLIGRAM, QD
     Route: 042
     Dates: start: 20181019, end: 20181019
  135. THIAMINE HYDROCHLORIDE [Concomitant]
     Active Substance: THIAMINE HYDROCHLORIDE
     Dosage: 50 MILLIGRAM, QD
     Route: 042
     Dates: start: 20190708, end: 20190722
  136. THIAMINE HYDROCHLORIDE [Concomitant]
     Active Substance: THIAMINE HYDROCHLORIDE
     Dosage: 50 MILLIGRAM, QD
     Route: 042
     Dates: start: 20190805, end: 20190815
  137. THIAMINE HYDROCHLORIDE [Concomitant]
     Active Substance: THIAMINE HYDROCHLORIDE
     Dosage: 50 MILLIGRAM, QD
     Route: 042
     Dates: start: 20190820, end: 20191011
  138. THIAMINE HYDROCHLORIDE [Concomitant]
     Active Substance: THIAMINE HYDROCHLORIDE
     Dosage: 50 MILLIGRAM, QD
     Route: 042
     Dates: start: 20191011, end: 20191017
  139. THIAMINE HYDROCHLORIDE [Concomitant]
     Active Substance: THIAMINE HYDROCHLORIDE
     Dosage: 1 DOSAGE FORM, QD
     Route: 042
     Dates: start: 20191212, end: 20200103
  140. THIAMINE HYDROCHLORIDE [Concomitant]
     Active Substance: THIAMINE HYDROCHLORIDE
     Dosage: 1 DOSAGE FORM, QD
     Route: 042
     Dates: start: 20200122, end: 20200208
  141. THIAMINE HYDROCHLORIDE [Concomitant]
     Active Substance: THIAMINE HYDROCHLORIDE
     Dosage: 1 DOSAGE FORM, QD
     Route: 042
     Dates: start: 20200302, end: 20200506
  142. THIAMINE HYDROCHLORIDE [Concomitant]
     Active Substance: THIAMINE HYDROCHLORIDE
     Dosage: 50 MILLIGRAM, QD
     Route: 042
     Dates: start: 20191020, end: 20191120
  143. ACETYLCYSTEINE [Concomitant]
     Active Substance: ACETYLCYSTEINE
     Indication: Cough
     Dosage: 300 MILLIGRAM
     Route: 042
     Dates: start: 20190225, end: 20190325
  144. ACETYLCYSTEINE [Concomitant]
     Active Substance: ACETYLCYSTEINE
     Dosage: 300 MILLIGRAM
     Route: 042
     Dates: start: 20190429, end: 20190429
  145. ACETYLCYSTEINE [Concomitant]
     Active Substance: ACETYLCYSTEINE
     Dosage: 300 MILLIGRAM
     Route: 048
     Dates: start: 20190821, end: 20190821
  146. ACETYLCYSTEINE [Concomitant]
     Active Substance: ACETYLCYSTEINE
     Dosage: 300 MILLIGRAM
     Route: 048
     Dates: start: 20190822, end: 20190827
  147. ACETYLCYSTEINE [Concomitant]
     Active Substance: ACETYLCYSTEINE
     Dosage: 300 MILLIGRAM
     Route: 048
     Dates: start: 20190828, end: 20190831
  148. ACETYLCYSTEINE [Concomitant]
     Active Substance: ACETYLCYSTEINE
     Dosage: 600 MILLIGRAM
     Route: 048
     Dates: start: 20190901, end: 20190902
  149. ACETYLCYSTEINE [Concomitant]
     Active Substance: ACETYLCYSTEINE
     Dosage: 600 MILLIGRAM
     Route: 048
     Dates: start: 20190903, end: 20191120
  150. ERDOSTEINE [Concomitant]
     Active Substance: ERDOSTEINE
     Indication: Cough
     Dosage: 300 MILLIGRAM
     Route: 048
     Dates: start: 20190325, end: 20190818
  151. ERDOSTEINE [Concomitant]
     Active Substance: ERDOSTEINE
     Dosage: 1 DOSAGE FORM
     Route: 048
     Dates: start: 20190822, end: 20190903
  152. GLYCOPYRROLATE [Concomitant]
     Active Substance: GLYCOPYRROLATE
     Indication: Saliva altered
     Dosage: 1 DOSAGE FORM
     Route: 048
     Dates: start: 20191106, end: 20201106
  153. BACLOFEN [Concomitant]
     Active Substance: BACLOFEN
     Indication: Muscle disorder
     Dosage: 10 MILLIGRAM, QD
     Route: 048
     Dates: start: 20200426
  154. CLONAZEPAM [Concomitant]
     Active Substance: CLONAZEPAM
     Indication: Dystonia
     Dosage: 1 DOSAGE FORM
     Route: 048
     Dates: start: 20200427
  155. ACETAMINOPHEN\TRAMADOL HYDROCHLORIDE [Concomitant]
     Active Substance: ACETAMINOPHEN\TRAMADOL HYDROCHLORIDE
     Indication: Pain
     Dosage: 1 DOSAGE FORM, QD
     Route: 048
     Dates: end: 20181018
  156. ACETAMINOPHEN\TRAMADOL HYDROCHLORIDE [Concomitant]
     Active Substance: ACETAMINOPHEN\TRAMADOL HYDROCHLORIDE
     Dosage: 1 DOSAGE FORM, QD
     Route: 048
     Dates: start: 20181112, end: 20181113
  157. RANITIDINE HYDROCHLORIDE [Concomitant]
     Active Substance: RANITIDINE HYDROCHLORIDE
     Dosage: 300 MILLIGRAM, QD
     Route: 048
     Dates: end: 20190324
  158. LIDOCAINE\PRILOCAINE [Concomitant]
     Active Substance: LIDOCAINE\PRILOCAINE
     Dosage: UNK, QD
     Route: 065
     Dates: start: 20181112, end: 20181113
  159. TAMSULOSIN HYDROCHLORIDE [Concomitant]
     Active Substance: TAMSULOSIN HYDROCHLORIDE
     Indication: Micturition disorder
     Dosage: 1 DOSAGE FORM, QD
     Route: 048
     Dates: start: 20190429, end: 20190818
  160. TAMSULOSIN HYDROCHLORIDE [Concomitant]
     Active Substance: TAMSULOSIN HYDROCHLORIDE
     Dosage: 1 DOSAGE FORM, QD
     Route: 048
     Dates: start: 20190822
  161. AMLODIPINE BESYLATE [Concomitant]
     Active Substance: AMLODIPINE BESYLATE
     Dosage: 0.5 DOSAGE FORM
     Route: 048
     Dates: start: 20190708, end: 20190818
  162. FAMOTIDINE [Concomitant]
     Active Substance: FAMOTIDINE
     Dosage: 30 MILLIGRAM
     Route: 048
     Dates: start: 20190717, end: 20190717
  163. MIDAZOLAM [Concomitant]
     Active Substance: MIDAZOLAM
     Dosage: 1 MILLIGRAM, QD
     Route: 065
     Dates: start: 20190717, end: 20190717
  164. MIDAZOLAM [Concomitant]
     Active Substance: MIDAZOLAM
     Dosage: 10 MILLIGRAM, QD
     Route: 065
     Dates: start: 20190904, end: 20190904
  165. CEFTRIAXONE SODIUM [Concomitant]
     Active Substance: CEFTRIAXONE SODIUM
     Dosage: 1 GRAM, QD
     Route: 065
     Dates: start: 20190717, end: 20190718
  166. MEPERIDINE HYDROCHLORIDE [Concomitant]
     Active Substance: MEPERIDINE HYDROCHLORIDE
     Indication: Pain
     Dosage: 25 MILLIGRAM, QD
     Route: 030
  167. LACTULOSE [Concomitant]
     Active Substance: LACTULOSE
     Indication: Constipation
     Dosage: 30 MILLILITER, QD
     Route: 048
     Dates: start: 20190822, end: 20190822
  168. LACTULOSE [Concomitant]
     Active Substance: LACTULOSE
     Dosage: 15 MILLILITER, QD
     Route: 048
     Dates: start: 20191121
  169. POTASSIUM CHLORIDE [Concomitant]
     Active Substance: POTASSIUM CHLORIDE
     Indication: Electrolyte imbalance
     Dosage: 2 DOSAGE FORM
     Route: 048
     Dates: start: 20190823, end: 20190828
  170. POTASSIUM CHLORIDE [Concomitant]
     Active Substance: POTASSIUM CHLORIDE
     Dosage: 2 DOSAGE FORM
     Route: 048
     Dates: start: 20190928, end: 20190929
  171. POTASSIUM CHLORIDE [Concomitant]
     Active Substance: POTASSIUM CHLORIDE
     Dosage: 30 MILLILITER, QD
     Route: 065
     Dates: start: 20190821, end: 20190821
  172. POTASSIUM CHLORIDE [Concomitant]
     Active Substance: POTASSIUM CHLORIDE
     Dosage: 20 MILLILITER, QD
     Route: 065
     Dates: start: 20190822, end: 20190823
  173. POTASSIUM CHLORIDE [Concomitant]
     Active Substance: POTASSIUM CHLORIDE
     Dosage: 10 MILLILITER, QD
     Route: 065
     Dates: start: 20190926, end: 20190926
  174. POTASSIUM CHLORIDE [Concomitant]
     Active Substance: POTASSIUM CHLORIDE
     Dosage: 20 MILLILITER, QD
     Route: 065
     Dates: start: 20191007, end: 20191011
  175. BISACODYL\DOCUSATE SODIUM [Concomitant]
     Active Substance: BISACODYL\DOCUSATE SODIUM
     Indication: Constipation
     Dosage: 10 MILLIGRAM, QD
     Route: 048
     Dates: start: 20190823, end: 20190823
  176. BISACODYL\DOCUSATE SODIUM [Concomitant]
     Active Substance: BISACODYL\DOCUSATE SODIUM
     Dosage: 10 MILLIGRAM
     Route: 048
     Dates: start: 20191011, end: 20191011
  177. TIROPRAMIDE HYDROCHLORIDE [Concomitant]
     Indication: Seizure
     Dosage: 1 DOSAGE FORM
     Route: 048
     Dates: start: 20190825, end: 20190825
  178. TIROPRAMIDE HYDROCHLORIDE [Concomitant]
     Indication: Pain
     Dosage: 1 DOSAGE FORM
     Route: 048
     Dates: start: 20190826, end: 20190826
  179. DIETARY SUPPLEMENT\PROBIOTICS [Concomitant]
     Active Substance: DIETARY SUPPLEMENT\PROBIOTICS
     Indication: Constipation
     Dosage: 2 GRAM
     Route: 048
     Dates: start: 20190912, end: 20191017
  180. DIETARY SUPPLEMENT\PROBIOTICS [Concomitant]
     Active Substance: DIETARY SUPPLEMENT\PROBIOTICS
     Dosage: 2 GRAM
     Route: 048
     Dates: start: 20191018
  181. SACCHAROMYCES CEREVISIAE [Concomitant]
     Active Substance: SACCHAROMYCES CEREVISIAE
     Indication: Constipation
     Dosage: 282.5 MILLIGRAM
     Route: 048
     Dates: start: 20191001, end: 20191017
  182. SACCHAROMYCES CEREVISIAE [Concomitant]
     Active Substance: SACCHAROMYCES CEREVISIAE
     Dosage: 565 MILLIGRAM
     Route: 048
     Dates: start: 20191018, end: 20191022
  183. REMIFENTANIL HYDROCHLORIDE [Concomitant]
     Active Substance: REMIFENTANIL HYDROCHLORIDE
     Dosage: 10 MILLIGRAM, QD
     Route: 065
     Dates: start: 20190820, end: 20190821
  184. REMIFENTANIL HYDROCHLORIDE [Concomitant]
     Active Substance: REMIFENTANIL HYDROCHLORIDE
     Dosage: 5 MILLIGRAM, QD
     Route: 065
     Dates: start: 20190822, end: 20190830
  185. REMIFENTANIL HYDROCHLORIDE [Concomitant]
     Active Substance: REMIFENTANIL HYDROCHLORIDE
     Dosage: 5 MILLIGRAM, QD
     Route: 065
     Dates: start: 20190901, end: 20190905
  186. REMIFENTANIL HYDROCHLORIDE [Concomitant]
     Active Substance: REMIFENTANIL HYDROCHLORIDE
     Dosage: 10 MILLIGRAM, QD
     Route: 065
     Dates: start: 20190906, end: 20190907
  187. REMIFENTANIL HYDROCHLORIDE [Concomitant]
     Active Substance: REMIFENTANIL HYDROCHLORIDE
     Dosage: 5 MILLIGRAM, QD
     Route: 065
     Dates: start: 20190908, end: 20190908
  188. TRAMADOL HYDROCHLORIDE [Concomitant]
     Active Substance: TRAMADOL HYDROCHLORIDE
     Dosage: 50 MILLIGRAM, QD
     Route: 048
     Dates: start: 20190904, end: 20190905
  189. CALCIUM CITRATE HYDRATE [Concomitant]
     Indication: Hypovitaminosis
     Dosage: 1 DOSAGE FORM
     Route: 048
     Dates: start: 20200430
  190. ESOMEPRAZOLE MAGNESIUM [Concomitant]
     Active Substance: ESOMEPRAZOLE MAGNESIUM
     Indication: Product used for unknown indication
     Dosage: 1 DOSAGE FORM
     Route: 048
     Dates: start: 20201007

REACTIONS (2)
  - Septic shock [Recovered/Resolved]
  - Drug interaction [Unknown]

NARRATIVE: CASE EVENT DATE: 20201012
